FAERS Safety Report 10203613 (Version 1)
Quarter: 2014Q2

REPORT INFORMATION
  Report Type: Spontaneous
  Country: DE (occurrence: DE)
  Receive Date: 20140529
  Receipt Date: 20140529
  Transmission Date: 20141212
  Serious: Yes (Congenital Anomaly)
  Sender: FDA-Public Use
  Company Number: DE-RANBAXY-2014R1-81416

PATIENT
  Age: 1 Day
  Sex: Female
  Weight: 3.78 kg

DRUGS (1)
  1. ISOTRETINOIN [Suspect]
     Indication: ACNE
     Dosage: 20 MG, QD
     Route: 064
     Dates: start: 20110621, end: 20110720

REACTIONS (5)
  - Dysmorphism [Not Recovered/Not Resolved]
  - Dandy-Walker syndrome [Not Recovered/Not Resolved]
  - Duane^s syndrome [Not Recovered/Not Resolved]
  - Hypotonia neonatal [Not Recovered/Not Resolved]
  - Developmental delay [Not Recovered/Not Resolved]
